FAERS Safety Report 10813610 (Version 2)
Quarter: 2016Q4

REPORT INFORMATION
  Report Type: Report from Study
  Country: GB (occurrence: GB)
  Receive Date: 20150218
  Receipt Date: 20161013
  Transmission Date: 20170206
  Serious: Yes (Hospitalization)
  Sender: FDA-Public Use
  Company Number: PHHO2014GB011740

PATIENT
  Age: 44 Year
  Sex: Male
  Weight: 119.9 kg

DRUGS (5)
  1. AIN457 [Suspect]
     Active Substance: SECUKINUMAB
     Dosage: 150 MG,
     Route: 058
     Dates: start: 20141017, end: 20141017
  2. PARACETAMOL [Concomitant]
     Active Substance: ACETAMINOPHEN
     Indication: PAIN
     Dosage: 1 G, QDS
     Route: 048
  3. AIN457 [Suspect]
     Active Substance: SECUKINUMAB
     Indication: PSORIASIS
     Dosage: 150 MG,
     Route: 058
     Dates: start: 20140502, end: 20140822
  4. METFORMIN [Concomitant]
     Active Substance: METFORMIN HYDROCHLORIDE
     Indication: TYPE 2 DIABETES MELLITUS
     Dosage: 19 UNK, QD
     Route: 048
  5. ALOGLIPTIN. [Concomitant]
     Active Substance: ALOGLIPTIN
     Indication: TYPE 2 DIABETES MELLITUS
     Dosage: 25 MG, QD
     Route: 048

REACTIONS (2)
  - Hypoaesthesia [Not Recovered/Not Resolved]
  - Pneumonia [Recovered/Resolved]

NARRATIVE: CASE EVENT DATE: 20140823
